FAERS Safety Report 21629269 (Version 1)
Quarter: 2022Q4

REPORT INFORMATION
  Report Type: Report from Study
  Country: US (occurrence: US)
  Receive Date: 20221122
  Receipt Date: 20221122
  Transmission Date: 20230113
  Serious: Yes (Other)
  Sender: FDA-Public Use
  Company Number: US-MYLANLABS-2022M1131224

PATIENT
  Age: 51 Year
  Sex: Female

DRUGS (2)
  1. TRETINOIN [Suspect]
     Active Substance: TRETINOIN
     Indication: Acute promyelocytic leukaemia
     Dosage: UNK
     Route: 065
  2. ARSENIC TRIOXIDE [Suspect]
     Active Substance: ARSENIC TRIOXIDE
     Indication: Acute promyelocytic leukaemia
     Dosage: UNK
     Route: 065

REACTIONS (2)
  - Differentiation syndrome [Recovered/Resolved]
  - Off label use [Unknown]
